FAERS Safety Report 9417849 (Version 2)
Quarter: 2013Q4

REPORT INFORMATION
  Report Type: Spontaneous
  Country: FR (occurrence: FR)
  Receive Date: 20130724
  Receipt Date: 20131017
  Transmission Date: 20140711
  Serious: Yes (Life-Threatening, Hospitalization)
  Sender: FDA-Public Use
  Company Number: FR-BAYER-2013-088349

PATIENT
  Age: 22 Year
  Sex: Female
  Weight: 45 kg

DRUGS (15)
  1. IZILOX [Suspect]
     Indication: TUBERCULOSIS
     Dosage: 1 G, QD
     Route: 048
     Dates: start: 20130227, end: 20130408
  2. PASER [Suspect]
     Indication: TUBERCULOSIS
     Dosage: UNK
     Route: 048
     Dates: start: 20130321, end: 20130408
  3. EXACYL [Suspect]
     Dosage: 2 G, QD
     Route: 048
     Dates: start: 20130321, end: 20130408
  4. CYCLOSERINE [Suspect]
     Indication: TUBERCULOSIS
     Dosage: 250 MG, QD
     Dates: start: 20130227, end: 20130408
  5. AMIKLIN [Suspect]
     Indication: TUBERCULOSIS
     Dosage: 400 MG, QD
     Dates: start: 20130227, end: 20130408
  6. PIRILENE [Concomitant]
     Indication: TUBERCULOSIS
     Dosage: UNK
     Route: 048
     Dates: start: 20130227, end: 20130408
  7. ZYVOXID [Concomitant]
     Indication: TUBERCULOSIS
     Dosage: 300 MG, UNK
     Route: 048
     Dates: start: 20130227, end: 20130408
  8. DEXAMBUTOL [Concomitant]
  9. TRECATOR [Concomitant]
     Dosage: UNK
     Dates: end: 20130315
  10. PASER [Concomitant]
  11. EXACYL [Concomitant]
     Indication: HAEMOPTYSIS
     Dosage: 2 G, DAILY
  12. UVEDOSE [Concomitant]
     Indication: VITAMIN D DEFICIENCY
     Dosage: UNK
  13. UVEDOSE [Concomitant]
     Indication: VITAMIN D DEFICIENCY
     Dosage: UNK
     Dates: start: 20130315
  14. UVEDOSE [Concomitant]
     Indication: VITAMIN D DEFICIENCY
     Dosage: UNK
     Dates: start: 20130329
  15. UVEDOSE [Concomitant]
     Indication: VITAMIN D DEFICIENCY
     Dosage: UNK
     Dates: start: 20130415

REACTIONS (13)
  - Drug reaction with eosinophilia and systemic symptoms [Recovered/Resolved]
  - Pyrexia [Recovered/Resolved]
  - Hepatocellular injury [Recovered/Resolved]
  - Neutropenia [Recovered/Resolved]
  - Lymphopenia [Recovered/Resolved]
  - Coagulation time prolonged [Recovered/Resolved]
  - Rash [Recovered/Resolved]
  - Transaminases increased [Recovered/Resolved]
  - Pruritus [Recovered/Resolved]
  - Lymphocyte count increased [Recovered/Resolved]
  - Rash generalised [Recovered/Resolved]
  - Prothrombin level decreased [Recovered/Resolved]
  - Thrombocytopenia [Recovered/Resolved]
